FAERS Safety Report 21355524 (Version 1)
Quarter: 2022Q3

REPORT INFORMATION
  Report Type: Spontaneous
  Country: US (occurrence: None)
  Receive Date: 20220919
  Receipt Date: 20220919
  Transmission Date: 20221027
  Serious: No
  Sender: FDA-Public Use
  Company Number: None

PATIENT
  Sex: Female
  Weight: 60.33 kg

DRUGS (13)
  1. CAPECITABINE [Suspect]
     Active Substance: CAPECITABINE
     Indication: Breast cancer female
     Dosage: 1000 MG TWICE DAILY ORAL - 14 DAYS ON, 7 D OFF?
     Route: 048
  2. ACETAMINOPHEN [Concomitant]
     Active Substance: ACETAMINOPHEN
  3. AFINITOR [Concomitant]
     Active Substance: EVEROLIMUS
  4. AMLODIPINE [Concomitant]
     Active Substance: AMLODIPINE BESYLATE
  5. ATORVASTATIN [Concomitant]
     Active Substance: ATORVASTATIN
  6. DARBEPOETIN ALFA [Concomitant]
     Active Substance: DARBEPOETIN ALFA
  7. DEXAMETHASONE [Concomitant]
     Active Substance: DEXAMETHASONE
  8. EXEMESTANE [Concomitant]
     Active Substance: EXEMESTANE
  9. METOPROLOL [Concomitant]
     Active Substance: METOPROLOL
  10. PEPCID [Concomitant]
     Active Substance: FAMOTIDINE
  11. PROCHLORPERAZINE [Concomitant]
     Active Substance: PROCHLORPERAZINE
  12. VITAMIN D3 [Concomitant]
     Active Substance: CHOLECALCIFEROL
  13. XGEVA [Concomitant]
     Active Substance: DENOSUMAB

REACTIONS (2)
  - Drug ineffective [None]
  - Therapy cessation [None]
